FAERS Safety Report 8494523-6 (Version None)
Quarter: 2012Q3

REPORT INFORMATION
  Report Type: 
  Country: None (occurrence: None)
  Receive Date: 20120709
  Receipt Date: 20120627
  Transmission Date: 20120928
  Serious: Yes (Hospitalization)
  Sender: FDA-Public Use
  Company Number: US-GENZYME-THYM-1003314

PATIENT
  Sex: Male
  Weight: 59 kg

DRUGS (14)
  1. THYMOGLOBULIN [Suspect]
     Dosage: 100 UNK, QD
     Route: 042
     Dates: start: 20120411, end: 20120411
  2. PROGRAF [Suspect]
     Indication: RENAL TRANSPLANT
     Dosage: 2 MG, BID
     Route: 048
     Dates: start: 20120410
  3. CELLCEPT [Suspect]
     Indication: RENAL TRANSPLANT
     Dosage: 1000 MG, BID
     Route: 048
     Dates: start: 20120410, end: 20120426
  4. CELLCEPT [Suspect]
     Dosage: 500 MG, BID
     Route: 065
     Dates: start: 20120503
  5. VALCYTE [Suspect]
     Indication: ANTIVIRAL PROPHYLAXIS
     Dosage: 450 MG, QD
     Route: 048
     Dates: start: 20120410, end: 20120413
  6. CELLCEPT [Suspect]
     Dosage: 500 MG, BID
     Route: 048
     Dates: start: 20120428, end: 20120429
  7. CELLCEPT [Suspect]
     Dosage: 1000 MG, BID
     Route: 048
     Dates: start: 20120611
  8. VALCYTE [Suspect]
     Dosage: 450 MG, 3X/W
     Route: 048
     Dates: start: 20120504
  9. THYMOGLOBULIN [Suspect]
     Indication: RENAL TRANSPLANT
     Dosage: 125 UNK, QD
     Route: 042
     Dates: start: 20120409, end: 20120410
  10. CELLCEPT [Suspect]
     Dosage: 750 MG, QD
     Route: 048
     Dates: start: 20120502, end: 20120502
  11. CELLCEPT [Suspect]
     Dosage: 750 MG, BID
     Route: 048
     Dates: start: 20120426, end: 20120401
  12. VALCYTE [Suspect]
     Dosage: 450 MG, 3X/W
     Route: 048
     Dates: start: 20120416, end: 20120428
  13. CELLCEPT [Suspect]
     Dosage: 250 MG, PM
     Route: 048
     Dates: start: 20120501, end: 20120501
  14. ASP8597 BLINDED [Suspect]
     Indication: RENAL TRANSPLANT
     Dosage: 5.9 ML (400 MG,) UNK
     Route: 042
     Dates: start: 20120409, end: 20120409

REACTIONS (5)
  - ABDOMINAL PAIN [None]
  - NEUTROPENIA [None]
  - SUPRAPUBIC PAIN [None]
  - CATHETER SITE RELATED REACTION [None]
  - DIARRHOEA [None]
